FAERS Safety Report 24648503 (Version 1)
Quarter: 2024Q4

REPORT INFORMATION
  Report Type: Other
  Country: JP (occurrence: JP)
  Receive Date: 20241121
  Receipt Date: 20241121
  Transmission Date: 20250115
  Serious: Yes (Life-Threatening, Hospitalization, Other)
  Sender: AVEVA DRUG DELIVERY SYSTEMS INC.
  Company Number: JP-AVEVA-000786

PATIENT
  Age: 54 Year
  Sex: Female

DRUGS (1)
  1. FENTANYL [Suspect]
     Active Substance: FENTANYL
     Indication: Proctalgia
     Dosage: 4 MILLIGRAM/DAY
     Route: 062

REACTIONS (3)
  - Hypoxic-ischaemic encephalopathy [Recovering/Resolving]
  - Overdose [Unknown]
  - Central nervous system lesion [Recovering/Resolving]
